FAERS Safety Report 6495404-X (Version None)
Quarter: 2009Q4

REPORT INFORMATION
  Report Type: 
  Country: None (occurrence: None)
  Receive Date: 20091214
  Receipt Date: 20090727
  Transmission Date: 20100525
  Serious: No
  Sender: FDA-Public Use
  Company Number: US-BRISTOL-MYERS SQUIBB COMPANY-14666937

PATIENT
  Age: 31 Year
  Sex: Female

DRUGS (4)
  1. ABILIFY [Suspect]
     Indication: SCHIZOAFFECTIVE DISORDER
     Dosage: STARTED FROM APPROXIMATELY 2004.REDUCED TO 15MG QD
     Route: 048
  2. LAMICTAL [Suspect]
     Indication: SCHIZOAFFECTIVE DISORDER
     Dates: start: 20040101
  3. RESTORIL [Concomitant]
     Indication: SCHIZOAFFECTIVE DISORDER
     Dates: start: 20040101
  4. ANTIDEPRESSANT [Concomitant]
     Indication: SCHIZOAFFECTIVE DISORDER
     Dates: start: 20040101

REACTIONS (1)
  - HEPATIC STEATOSIS [None]
